FAERS Safety Report 12099519 (Version 1)
Quarter: 2016Q1

REPORT INFORMATION
  Report Type: Spontaneous
  Country: US (occurrence: US)
  Receive Date: 20160222
  Receipt Date: 20160222
  Transmission Date: 20160526
  Serious: Yes (Other)
  Sender: FDA-Public Use
  Company Number: US-009507513-1602USA009928

PATIENT
  Age: 67 Year
  Sex: Male

DRUGS (1)
  1. CUBICIN [Suspect]
     Active Substance: DAPTOMYCIN
     Indication: POSTOPERATIVE WOUND INFECTION
     Dosage: UNKNOWN
     Route: 042

REACTIONS (6)
  - Oxygen saturation decreased [Unknown]
  - Cough [Unknown]
  - Chest pain [Unknown]
  - Respiratory rate increased [Unknown]
  - Dyspnoea [Unknown]
  - Heart rate increased [Unknown]
